FAERS Safety Report 15234658 (Version 1)
Quarter: 2018Q3

REPORT INFORMATION
  Report Type: Spontaneous
  Country: JP (occurrence: JP)
  Receive Date: 20180803
  Receipt Date: 20180803
  Transmission Date: 20181010
  Serious: Yes (Other)
  Sender: FDA-Public Use
  Company Number: JP-ALEMBIC PHARMACUETICALS LIMITED-2018SCAL000562

PATIENT

DRUGS (1)
  1. LAMOTRIGINE. [Suspect]
     Active Substance: LAMOTRIGINE
     Indication: BIPOLAR DISORDER
     Dosage: UNK
     Dates: start: 2018

REACTIONS (10)
  - Face oedema [Recovering/Resolving]
  - Purpura [Recovering/Resolving]
  - Drug reaction with eosinophilia and systemic symptoms [Recovered/Resolved]
  - Rash generalised [Recovering/Resolving]
  - Pyrexia [Recovering/Resolving]
  - Hepatitis [Unknown]
  - Cytomegalovirus infection [Unknown]
  - Lymphadenopathy [Recovering/Resolving]
  - Lymph node pain [Recovering/Resolving]
  - Skin exfoliation [Recovering/Resolving]
